FAERS Safety Report 16355770 (Version 2)
Quarter: 2019Q2

REPORT INFORMATION
  Report Type: Spontaneous
  Country: HU (occurrence: HU)
  Receive Date: 20190525
  Receipt Date: 20190626
  Transmission Date: 20190711
  Serious: Yes (Other)
  Sender: FDA-Public Use
  Company Number: HU-BRISTOL-MYERS SQUIBB COMPANY-BMS-2019-047367

PATIENT
  Age: 63 Year
  Sex: Female

DRUGS (1)
  1. OPDIVO [Suspect]
     Active Substance: NIVOLUMAB
     Indication: SQUAMOUS CELL CARCINOMA OF HEAD AND NECK
     Dosage: 10 MG/ML
     Route: 065
     Dates: start: 20171214

REACTIONS (3)
  - Abdominal pain [Unknown]
  - Conjunctivitis [Unknown]
  - Obstructive pancreatitis [Unknown]

NARRATIVE: CASE EVENT DATE: 201801
